FAERS Safety Report 8306914-4 (Version None)
Quarter: 2012Q2

REPORT INFORMATION
  Report Type: 
  Country: None (occurrence: None)
  Receive Date: 20120424
  Receipt Date: 20120419
  Transmission Date: 20120825
  Serious: Yes (Hospitalization, Other)
  Sender: FDA-Public Use
  Company Number: US-PURDUE-USA-2012-0085693

PATIENT
  Sex: Female

DRUGS (1)
  1. OXYCONTIN [Suspect]
     Indication: PRODUCT USED FOR UNKNOWN INDICATION
     Dosage: 80 MG, BID
     Route: 048

REACTIONS (3)
  - HIP FRACTURE [None]
  - ORTHOSTATIC HYPOTENSION [None]
  - FALL [None]
